FAERS Safety Report 17174266 (Version 3)
Quarter: 2019Q4

REPORT INFORMATION
  Report Type: Report from Study
  Country: JP (occurrence: JP)
  Receive Date: 20191219
  Receipt Date: 20191230
  Transmission Date: 20200122
  Serious: Yes (Hospitalization)
  Sender: FDA-Public Use
  Company Number: NVSC2019JP064687

PATIENT
  Age: 49 Year
  Sex: Male
  Weight: 76.5 kg

DRUGS (13)
  1. LIDOCAINE(4%) [Concomitant]
     Route: 065
     Dates: start: 20191210, end: 20191210
  2. TIMOLOL MELEATE [Concomitant]
     Route: 065
     Dates: start: 20191212
  3. ILARIS [Suspect]
     Active Substance: CANAKINUMAB
     Indication: PRODUCT USED FOR UNKNOWN INDICATION
     Route: 065
  4. INFULUENZA HA VACCINE [Concomitant]
     Route: 065
     Dates: start: 20191125, end: 20191125
  5. MOXIFLOXACIN HYDROCHLORIDE. [Concomitant]
     Active Substance: MOXIFLOXACIN HYDROCHLORIDE
     Dosage: UNK
     Route: 065
     Dates: start: 20191210
  6. BENZBROMARONE [Concomitant]
     Active Substance: BENZBROMARONE
     Indication: GOUT
     Route: 065
     Dates: start: 20090128
  7. ACETAMINOPHEN. [Concomitant]
     Active Substance: ACETAMINOPHEN
     Dosage: UNK
     Route: 065
     Dates: start: 20191210, end: 20191210
  8. ILARIS [Suspect]
     Active Substance: CANAKINUMAB
     Indication: NON-SMALL CELL LUNG CANCER
     Route: 058
     Dates: start: 20191015, end: 20191128
  9. MAGNESIUM OXIDE. [Concomitant]
     Active Substance: MAGNESIUM OXIDE
     Indication: CONSTIPATION
     Route: 065
     Dates: start: 20190617
  10. SENNOSIDE A B CALCIUM [Concomitant]
     Indication: CONSTIPATION
     Route: 065
     Dates: start: 20190617
  11. CODEINE PHOSPHATE HYDRATE [Concomitant]
     Active Substance: CODEINE PHOSPHATE
     Indication: COUGH
     Route: 065
     Dates: start: 20191101
  12. TRIAMCINOLANE ACETONIDE [Concomitant]
     Route: 065
     Dates: start: 20191210, end: 20191210
  13. URALYT [Concomitant]
     Active Substance: POTASSIUM CITRATE\TRISODIUM CITRATE DIHYDRATE
     Indication: GOUT
     Route: 065
     Dates: start: 20090128

REACTIONS (1)
  - Rhegmatogenous retinal detachment [Unknown]

NARRATIVE: CASE EVENT DATE: 20191209
